FAERS Safety Report 13319760 (Version 3)
Quarter: 2017Q2

REPORT INFORMATION
  Report Type: Spontaneous
  Country: FR (occurrence: FR)
  Receive Date: 20170310
  Receipt Date: 20170418
  Transmission Date: 20170830
  Serious: Yes (Death, Hospitalization)
  Sender: FDA-Public Use
  Company Number: FR-SA-2017SA039447

PATIENT
  Age: 83 Year
  Sex: Female
  Weight: 104.7 kg

DRUGS (4)
  1. SOLOSTAR [Concomitant]
     Active Substance: DEVICE
     Dates: start: 20161022, end: 20161023
  2. RIVOTRIL [Concomitant]
     Active Substance: CLONAZEPAM
  3. LANTUS SOLOSTAR [Suspect]
     Active Substance: INSULIN GLARGINE
     Route: 058
     Dates: start: 20161022, end: 20161023
  4. ISUPREL [Concomitant]
     Active Substance: ISOPROTERENOL HYDROCHLORIDE
     Dosage: (ISOPRENALINE) 0.2MG / 1ML

REACTIONS (3)
  - Hypoglycaemia [Fatal]
  - Drug prescribing error [Unknown]
  - Metabolic encephalopathy [Fatal]

NARRATIVE: CASE EVENT DATE: 20161022
